FAERS Safety Report 5078369-7 (Version None)
Quarter: 2006Q3

REPORT INFORMATION
  Report Type: 
  Country: None (occurrence: None)
  Receive Date: 20060811
  Receipt Date: 20060530
  Transmission Date: 20061208
  Serious: Yes (Hospitalization, Disabling)
  Sender: FDA-Public Use
  Company Number: FR-GLAXOSMITHKLINE-B0426071A

PATIENT
  Age: 28 Year
  Sex: Female
  Weight: 62 kg

DRUGS (4)
  1. MALARONE [Suspect]
     Indication: MALARIA
     Dosage: 2TAB THREE TIMES PER DAY
     Route: 048
     Dates: start: 20031224, end: 20031226
  2. LARIAM [Suspect]
     Indication: MALARIA
     Dosage: 1250MG PER DAY
     Route: 048
     Dates: start: 20031230, end: 20031230
  3. ROHYPNOL [Suspect]
     Indication: INSOMNIA
     Dosage: 5MG PER DAY
     Route: 048
     Dates: start: 20031224, end: 20040101
  4. CIFLOX [Concomitant]
     Indication: CYSTITIS
     Route: 065
     Dates: start: 20040102, end: 20040109

REACTIONS (4)
  - DRUG INEFFECTIVE [None]
  - HALLUCINATION [None]
  - INSOMNIA [None]
  - MAJOR DEPRESSION [None]
